FAERS Safety Report 8862659 (Version 1)
Quarter: 2012Q4

REPORT INFORMATION
  Report Type: 
  Country: US (occurrence: US)
  Receive Date: 20121026
  Receipt Date: 20121026
  Transmission Date: 20130627
  Serious: No
  Sender: FDA-Public Use
  Company Number: US-TEVA-363825USA

PATIENT
  Sex: Female

DRUGS (6)
  1. NUVIGIL [Suspect]
     Dosage: 150 Milligram Daily;
     Route: 048
     Dates: start: 20120827
  2. NEURONTIN [Concomitant]
  3. WELLBUTRIN [Concomitant]
  4. PERCOCET [Concomitant]
  5. TRAMADOL [Concomitant]
  6. VICODIN [Concomitant]

REACTIONS (1)
  - Drug ineffective [Unknown]
